FAERS Safety Report 9306159 (Version 1)
Quarter: 2013Q2

REPORT INFORMATION
  Report Type: Spontaneous
  Country: US (occurrence: US)
  Receive Date: 20130523
  Receipt Date: 20130523
  Transmission Date: 20140414
  Serious: No
  Sender: FDA-Public Use
  Company Number: US-PFIZER INC-2013155275

PATIENT
  Age: 69 Year
  Sex: Female
  Weight: 61.22 kg

DRUGS (6)
  1. SOMAVERT [Suspect]
     Dosage: 10 MG, 1X/DAY
     Route: 058
  2. SYNTHROID [Concomitant]
     Dosage: 100 UG, UNK
  3. DIOVAN HCT [Concomitant]
     Dosage: 160-12.5
  4. CRESTOR [Concomitant]
     Dosage: 5 MG, UNK
  5. CALCIUM [Concomitant]
     Dosage: 500 MG, UNK
  6. ASPIRIN [Concomitant]
     Dosage: 81 MG, UNK

REACTIONS (1)
  - Cough [Unknown]
